FAERS Safety Report 9310310 (Version 2)
Quarter: 2013Q3

REPORT INFORMATION
  Report Type: Spontaneous
  Country: US (occurrence: US)
  Receive Date: 20130527
  Receipt Date: 20130726
  Transmission Date: 20140515
  Serious: Yes (Death, Hospitalization, Other)
  Sender: FDA-Public Use
  Company Number: US-AMGEN-USASP2013037003

PATIENT
  Age: 40 Year
  Sex: Female
  Weight: 50.79 kg

DRUGS (1)
  1. ENBREL [Suspect]
     Indication: RHEUMATOID ARTHRITIS
     Dosage: 50 MG, QWK
     Route: 058
     Dates: start: 2006

REACTIONS (4)
  - Death [Fatal]
  - Gastric cancer stage IV [Not Recovered/Not Resolved]
  - Metastases to peritoneum [Not Recovered/Not Resolved]
  - Intestinal obstruction [Not Recovered/Not Resolved]
